FAERS Safety Report 17665030 (Version 5)
Quarter: 2020Q2

REPORT INFORMATION
  Report Type: Spontaneous
  Country: US (occurrence: US)
  Receive Date: 20200414
  Receipt Date: 20200611
  Transmission Date: 20200713
  Serious: No
  Sender: FDA-Public Use
  Company Number: US-PFIZER INC-2020151431

PATIENT
  Age: 67 Year
  Sex: Female

DRUGS (1)
  1. XELJANZ [Suspect]
     Active Substance: TOFACITINIB CITRATE
     Dosage: 5 MG
     Dates: start: 20200228

REACTIONS (7)
  - Peripheral swelling [Unknown]
  - Foot deformity [Unknown]
  - Fall [Unknown]
  - Depression [Unknown]
  - Pain in extremity [Recovering/Resolving]
  - Body temperature increased [Unknown]
  - Limb injury [Unknown]
